FAERS Safety Report 10454139 (Version 1)
Quarter: 2014Q3

REPORT INFORMATION
  Report Type: Spontaneous
  Country: FR (occurrence: FR)
  Receive Date: 20140915
  Receipt Date: 20140915
  Transmission Date: 20150326
  Serious: Yes (Hospitalization)
  Sender: FDA-Public Use
  Company Number: FR-009507513-1409FRA003964

PATIENT
  Age: 34 Year
  Sex: Female

DRUGS (4)
  1. GONADOTROPIN, CHORIONIC [Suspect]
     Active Substance: CHORIOGONADOTROPIN ALFA
     Indication: IN VITRO FERTILISATION
     Dosage: 5000 IU/1ML, 1 DF, UNIQUE INTAKE
     Route: 030
     Dates: start: 20140612, end: 20140612
  2. ORGALUTRAN [Suspect]
     Active Substance: GANIRELIX ACETATE
     Dosage: 0.25MG/0.5ML, HALF A VIAL PER DAY
     Route: 058
     Dates: start: 20140610, end: 20140611
  3. GONAL-F [Suspect]
     Active Substance: FOLLITROPIN
     Indication: IN VITRO FERTILISATION
     Dosage: 900 IU/1.5ML (66UG/1.5ML), 375 IU THE LAST DAY, TOTAL DAILY DOSE 225IU, 1 IN 1 DAY
     Route: 058
     Dates: start: 20140603, end: 20140611
  4. ORGALUTRAN [Suspect]
     Active Substance: GANIRELIX ACETATE
     Indication: IN VITRO FERTILISATION
     Dosage: 0.25MG/0.5ML, 1 VIAL PER DAY FOR 2 DAYS
     Route: 058
     Dates: start: 20140608, end: 20140610

REACTIONS (3)
  - Ascites [Recovered/Resolved]
  - Pleural effusion [Recovered/Resolved]
  - Ovarian hyperstimulation syndrome [Recovered/Resolved]

NARRATIVE: CASE EVENT DATE: 20140626
